FAERS Safety Report 9004738 (Version 3)
Quarter: 2013Q2

REPORT INFORMATION
  Report Type: Spontaneous
  Country: US (occurrence: US)
  Receive Date: 20130109
  Receipt Date: 20130425
  Transmission Date: 20140414
  Serious: No
  Sender: FDA-Public Use
  Company Number: US-009507513-1211USA011396

PATIENT
  Sex: Male

DRUGS (7)
  1. PEGINTRON [Suspect]
     Indication: HEPATITIS C
     Dosage: 150 MICROGRAM, QW
     Route: 058
     Dates: start: 20121109
  2. PEGINTRON [Suspect]
     Dosage: UNK
     Dates: start: 20121123
  3. PEGINTRON [Suspect]
     Dosage: UNK
     Dates: start: 2011
  4. REBETOL [Suspect]
     Indication: HEPATITIS C
     Dosage: UNK
     Route: 048
     Dates: start: 20121123
  5. REBETOL [Suspect]
     Dosage: UNK
     Route: 048
     Dates: start: 2011
  6. VICTRELIS [Suspect]
     Dosage: UNK
     Route: 048
     Dates: start: 20121223
  7. VICTRELIS [Suspect]
     Dosage: UNK
     Route: 048
     Dates: start: 2011

REACTIONS (5)
  - Drug ineffective [Unknown]
  - Therapeutic response decreased [Unknown]
  - Pyrexia [Unknown]
  - Influenza like illness [Unknown]
  - Drug dose omission [Unknown]
